FAERS Safety Report 23656226 (Version 1)
Quarter: 2024Q1

REPORT INFORMATION
  Report Type: Spontaneous
  Country: DK (occurrence: DK)
  Receive Date: 20240321
  Receipt Date: 20240321
  Transmission Date: 20240409
  Serious: Yes (Other)
  Sender: FDA-Public Use
  Company Number: None

PATIENT
  Age: 80 Year
  Sex: Female

DRUGS (7)
  1. EVENITY [Suspect]
     Active Substance: ROMOSOZUMAB-AQQG
     Indication: Osteoporosis
     Dosage: 210 MILLIGRAM, EV 30 DAYS
     Route: 058
     Dates: start: 202302, end: 202402
  2. Hjertemagnyl [Concomitant]
     Indication: Anticoagulant therapy
     Dosage: UNK
     Dates: start: 20130326
  3. Selexid [Concomitant]
     Indication: Cystitis
     Dosage: UNK
     Dates: start: 20230619
  4. TAFLUPROST [Concomitant]
     Active Substance: TAFLUPROST
     Indication: Glaucoma
     Dosage: UNK
     Dates: start: 20210310
  5. ACETAMINOPHEN [Concomitant]
     Active Substance: ACETAMINOPHEN
     Indication: Pain
     Dosage: UNK
     Dates: start: 20211112
  6. BENDROFLUMETHIAZIDE\POTASSIUM CHLORIDE [Concomitant]
     Active Substance: BENDROFLUMETHIAZIDE\POTASSIUM CHLORIDE
     Indication: Hypertension
     Dosage: UNK
     Dates: start: 20230501
  7. LOSARTAN [Concomitant]
     Active Substance: LOSARTAN
     Indication: Hypertension
     Dosage: UNK
     Dates: start: 20170127

REACTIONS (2)
  - Rash vesicular [Unknown]
  - Cataract [Not Recovered/Not Resolved]
